FAERS Safety Report 6574434-3 (Version None)
Quarter: 2010Q1

REPORT INFORMATION
  Report Type: 
  Country: None (occurrence: None)
  Receive Date: 20100209
  Receipt Date: 20091101
  Transmission Date: 20100710
  Serious: No
  Sender: FDA-Public Use
  Company Number: A0593255A

PATIENT
  Age: 49 Year
  Sex: Male

DRUGS (3)
  1. PAROXETINE HCL [Suspect]
     Indication: OBSESSIVE-COMPULSIVE DISORDER
     Dosage: 30MG PER DAY
     Route: 048
  2. PAXIL [Suspect]
     Indication: OBSESSIVE-COMPULSIVE DISORDER
     Dosage: 8MG UNKNOWN
     Route: 048
     Dates: start: 20010401
  3. XANAX [Concomitant]

REACTIONS (5)
  - DRUG INEFFECTIVE [None]
  - FATIGUE [None]
  - IRRITABILITY [None]
  - LETHARGY [None]
  - NAUSEA [None]
